FAERS Safety Report 24807925 (Version 1)
Quarter: 2025Q1

REPORT INFORMATION
  Report Type: Report from Study
  Country: NL (occurrence: NL)
  Receive Date: 20250106
  Receipt Date: 20250106
  Transmission Date: 20250409
  Serious: Yes (Other)
  Sender: UCB
  Company Number: NL-UCBSA-2025000284

PATIENT
  Age: 12 Year
  Sex: Female

DRUGS (1)
  1. FINTEPLA [Suspect]
     Active Substance: FENFLURAMINE
     Indication: Severe myoclonic epilepsy of infancy
     Dosage: 6 MILLILITER, 2X/DAY (BID)
     Dates: start: 202409

REACTIONS (2)
  - Scoliosis [Recovering/Resolving]
  - Scoliosis surgery [Recovering/Resolving]

NARRATIVE: CASE EVENT DATE: 20240101
